FAERS Safety Report 9686813 (Version 1)
Quarter: 2013Q4

REPORT INFORMATION
  Report Type: Spontaneous
  Country: US (occurrence: US)
  Receive Date: 20131113
  Receipt Date: 20131113
  Transmission Date: 20140711
  Serious: No
  Sender: FDA-Public Use
  Company Number: US-PFIZER INC-2013318245

PATIENT
  Age: 48 Year
  Sex: Male

DRUGS (1)
  1. BOSULIF [Suspect]
     Dosage: 500 MG, UNK
     Dates: start: 20131105

REACTIONS (1)
  - Diarrhoea [Unknown]
